FAERS Safety Report 5922671-0 (Version None)
Quarter: 2008Q3

REPORT INFORMATION
  Report Type: 
  Country: None (occurrence: None)
  Receive Date: 20080909
  Receipt Date: 20070911
  Transmission Date: 20090109
  Serious: Yes (Death, Hospitalization)
  Sender: FDA-Public Use
  Company Number: 163-20785-07021056 (1)

PATIENT
  Age: 72 Year
  Sex: Male

DRUGS (5)
  1. THALOMID [Suspect]
     Indication: MULTIPLE MYELOMA
     Dosage: 400 MG, 8 IN 1 D, ORAL
     Route: 048
     Dates: start: 20000803, end: 20020104
  2. AREDIA [Concomitant]
  3. ZOCOR [Concomitant]
  4. ASPIRIN [Concomitant]
  5. NORVASC [Concomitant]

REACTIONS (3)
  - DEEP VEIN THROMBOSIS [None]
  - MULTIPLE MYELOMA [None]
  - PULMONARY EMBOLISM [None]
